FAERS Safety Report 9280253 (Version 1)
Quarter: 2013Q2

REPORT INFORMATION
  Report Type: Spontaneous
  Country: US (occurrence: None)
  Receive Date: 20130507
  Receipt Date: 20130507
  Transmission Date: 20140414
  Serious: Yes (Hospitalization)
  Sender: FDA-Public Use
  Company Number: None

PATIENT
  Age: 49 Year
  Sex: Female

DRUGS (17)
  1. WARFARIN 4 MG [Suspect]
     Indication: PROSTHESIS IMPLANTATION
     Route: 048
  2. ALLOPURINOL [Concomitant]
  3. AZATHIOPRINE [Concomitant]
  4. CHOLCHICINE [Concomitant]
  5. CYCLOBENZAPRINE [Concomitant]
  6. DIVALPROEX [Concomitant]
  7. ERGOCALCIFEROL [Concomitant]
  8. LEXAPRO [Concomitant]
  9. FOLIC ACID [Concomitant]
  10. FUROSEMIDE [Concomitant]
  11. HYDROXYCHLOROQUINE [Concomitant]
  12. METOPROLOL [Concomitant]
  13. OXYCOCONE [Concomitant]
  14. PILOCARPINE [Concomitant]
  15. POTASSIUM [Concomitant]
  16. PRREDNISONE [Concomitant]
  17. SPIRONOLACTONE [Concomitant]

REACTIONS (3)
  - Haemorrhage [None]
  - Haematoma [None]
  - Haemorrhagic anaemia [None]
